FAERS Safety Report 24125561 (Version 1)
Quarter: 2024Q3

REPORT INFORMATION
  Report Type: Other
  Country: DE (occurrence: DE)
  Receive Date: 20240723
  Receipt Date: 20240723
  Transmission Date: 20241017
  Serious: Yes (Hospitalization, Other)
  Sender: COREPHARMA
  Company Number: DE-CorePharma LLC-2159468

PATIENT
  Age: 64 Year
  Sex: Male

DRUGS (1)
  1. RAMIPRIL [Suspect]
     Active Substance: RAMIPRIL
     Indication: Product used for unknown indication
     Route: 065

REACTIONS (5)
  - Respiratory failure [Unknown]
  - Dyspnoea [Unknown]
  - Angioedema [Unknown]
  - Supraventricular tachycardia [Unknown]
  - Cardiac failure [Unknown]
